FAERS Safety Report 13727285 (Version 1)
Quarter: 2017Q3

REPORT INFORMATION
  Report Type: Spontaneous
  Country: JP (occurrence: JP)
  Receive Date: 20170707
  Receipt Date: 20170707
  Transmission Date: 20171127
  Serious: Yes (Hospitalization, Other)
  Sender: FDA-Public Use
  Company Number: JP-PFIZER INC-2017292853

PATIENT
  Age: 75 Year
  Sex: Male

DRUGS (1)
  1. AMIODARONE HCL [Suspect]
     Active Substance: AMIODARONE HYDROCHLORIDE
     Dosage: UNK
     Route: 065

REACTIONS (11)
  - Hyperthyroidism [Recovering/Resolving]
  - Agitation [Recovering/Resolving]
  - Hyperbilirubinaemia [Recovering/Resolving]
  - Crepitations [Recovering/Resolving]
  - Hepatic function abnormal [Recovering/Resolving]
  - Thyrotoxic crisis [Recovering/Resolving]
  - Heart rate irregular [Recovering/Resolving]
  - Oedema [Recovering/Resolving]
  - Jaundice [Recovering/Resolving]
  - Dyspnoea exertional [Recovering/Resolving]
  - Jugular vein distension [Recovering/Resolving]
